FAERS Safety Report 21012581 (Version 2)
Quarter: 2022Q3

REPORT INFORMATION
  Report Type: Spontaneous
  Country: US (occurrence: US)
  Receive Date: 20220627
  Receipt Date: 20220811
  Transmission Date: 20221026
  Serious: Yes (Other)
  Sender: FDA-Public Use
  Company Number: US-009507513-2206USA007037

PATIENT
  Sex: Female

DRUGS (41)
  1. KEYTRUDA [Suspect]
     Active Substance: PEMBROLIZUMAB
     Indication: Triple negative breast cancer
     Dosage: 200 MILLIGRAM, Q3W(Q21D)
     Route: 042
     Dates: start: 20220112
  2. KEYTRUDA [Suspect]
     Active Substance: PEMBROLIZUMAB
     Dosage: CYCLE 7
     Dates: start: 20220806
  3. ABRAXANE [Suspect]
     Active Substance: PACLITAXEL
     Indication: Breast cancer metastatic
     Dosage: 180 MILLIGRAM, FREQUENCY: DAY 1, 8, 15, (Q28D)
     Dates: start: 20211215
  4. ABRAXANE [Suspect]
     Active Substance: PACLITAXEL
     Dosage: 180 MILLIGRAM, FREQUENCY: DAY 1, 8, 15
     Dates: start: 20220209
  5. ABRAXANE [Suspect]
     Active Substance: PACLITAXEL
     Dosage: 180 MILLIGRAM, FREQUENCY: DAY 1, 8, 15
     Dates: start: 20220216
  6. ABRAXANE [Suspect]
     Active Substance: PACLITAXEL
     Dosage: 180 MILLIGRAM, FREQUENCY: DAY 1, 8, 15
     Dates: start: 20220223
  7. ABRAXANE [Suspect]
     Active Substance: PACLITAXEL
     Dosage: 180 MILLIGRAM, FREQUENCY: DAY 1, 8, 15
     Dates: start: 20220309
  8. ABRAXANE [Suspect]
     Active Substance: PACLITAXEL
     Dosage: 180 MILLIGRAM, FREQUENCY: DAY 1, 8, 15
     Dates: start: 20220316
  9. ABRAXANE [Suspect]
     Active Substance: PACLITAXEL
     Dosage: 180 MILLIGRAM, FREQUENCY: DAY 1, 8, 15
     Dates: start: 20220323
  10. ABRAXANE [Suspect]
     Active Substance: PACLITAXEL
     Dosage: 180 MILLIGRAM, FREQUENCY: DAY 1, 8, 15
     Dates: start: 20220406
  11. ABRAXANE [Suspect]
     Active Substance: PACLITAXEL
     Dosage: 180 MILLIGRAM, FREQUENCY: DAY 1, 8, 15
     Dates: start: 20220413
  12. ABRAXANE [Suspect]
     Active Substance: PACLITAXEL
     Dosage: 180 MILLIGRAM, FREQUENCY: DAY 1, 8, 15
     Dates: start: 20220420
  13. ABRAXANE [Suspect]
     Active Substance: PACLITAXEL
     Dosage: 180 MILLIGRAM, FREQUENCY: DAY 1, 8, 15
     Dates: start: 20220504
  14. ABRAXANE [Suspect]
     Active Substance: PACLITAXEL
     Dosage: 180 MILLIGRAM, FREQUENCY: DAY 1, 8, 15
     Dates: start: 20220511
  15. ABRAXANE [Suspect]
     Active Substance: PACLITAXEL
     Dosage: 180 MILLIGRAM, FREQUENCY: DAY 1, 8, 15
     Dates: start: 20220517
  16. ABRAXANE [Suspect]
     Active Substance: PACLITAXEL
     Dosage: 180 MILLIGRAM, FREQUENCY: DAY 1, 8, 15
     Dates: start: 20220608
  17. ABRAXANE [Suspect]
     Active Substance: PACLITAXEL
     Dosage: 180 MILLIGRAM, FREQUENCY: DAY 1, 8, 15
     Dates: start: 20220615
  18. ABRAXANE [Suspect]
     Active Substance: PACLITAXEL
     Dosage: 180 MILLIGRAM, FREQUENCY: DAY 1, 8, 15
     Dates: start: 20220622
  19. ABRAXANE [Suspect]
     Active Substance: PACLITAXEL
     Dosage: 180 MILLIGRAM, FREQUENCY: DAY 1, 8, 15
     Dates: start: 20220706
  20. ABRAXANE [Suspect]
     Active Substance: PACLITAXEL
     Dosage: 180 MILLIGRAM, FREQUENCY: DAY 1, 8, 15
     Dates: start: 20220713
  21. ABRAXANE [Suspect]
     Active Substance: PACLITAXEL
     Dosage: 180 MILLIGRAM, FREQUENCY: DAY 1, 8, 15
     Dates: start: 20220720
  22. ABRAXANE [Suspect]
     Active Substance: PACLITAXEL
     Dosage: UNK
     Dates: start: 20220806
  23. REGLAN [Suspect]
     Active Substance: METOCLOPRAMIDE HYDROCHLORIDE
     Dosage: 10 MILLIGRAM
  24. SOLU-MEDROL [Suspect]
     Active Substance: METHYLPREDNISOLONE SODIUM SUCCINATE
     Dosage: 125 MILLIGRAM
  25. HYDROCHLOROTHIAZIDE\LOSARTAN POTASSIUM [Concomitant]
     Active Substance: HYDROCHLOROTHIAZIDE\LOSARTAN POTASSIUM
     Dosage: 1 TABLET BY MOUTH DAILY; STRENGHT: 50-12,5 MG PER TABLET
     Route: 048
  26. MONTELUKAST SODIUM [Concomitant]
     Active Substance: MONTELUKAST SODIUM
     Dosage: 10 MG BY MOUTH DAILY
     Route: 048
  27. DULOXETINE [Concomitant]
     Active Substance: DULOXETINE
     Dosage: 20 MG DAILY
  28. ZOFRAN [Concomitant]
     Active Substance: ONDANSETRON HYDROCHLORIDE
     Dosage: 8 MILLIGRAM
     Route: 048
     Dates: start: 20220406
  29. NORCO [Concomitant]
     Active Substance: ACETAMINOPHEN\HYDROCODONE BITARTRATE
     Dosage: 1 TABLET BY MOUTH EVERY 4 (FOUR) HOURS AS NEEDED; STRENGHT: 5-325 MG PER TABLET
     Route: 048
  30. SIMVASTATIN [Concomitant]
     Active Substance: SIMVASTATIN
     Dosage: 40 MG BY MOUTH VERY EVENING BEFORE DINNER
     Route: 048
  31. BETAMETHASONE DIPROPIONATE [Concomitant]
     Active Substance: BETAMETHASONE DIPROPIONATE
     Dosage: TWICE PER DAY
     Route: 061
  32. KEFLEX [Concomitant]
     Active Substance: CEPHALEXIN
     Dosage: 1 CAPSULE BY MOUTH4 (FOUR) TIMES DAILY
     Route: 048
  33. CITALOPRAM [Concomitant]
     Active Substance: CITALOPRAM HYDROBROMIDE
     Dosage: 1 TABLET BY MOUTH DAILY
     Route: 048
  34. FUROSEMIDE [Concomitant]
     Active Substance: FUROSEMIDE
     Dosage: 1 TABLET BY MOUTH 2 (TWO) TIMES DAILY
     Route: 048
  35. LEVOTHYROXINE [Concomitant]
     Active Substance: LEVOTHYROXINE
     Dosage: 1 TABLET BY MOUTH DAILY
     Route: 048
  36. LIDOCAINE\PRILOCAINE HYDROCHLORIDE [Concomitant]
     Active Substance: LIDOCAINE\PRILOCAINE HYDROCHLORIDE
     Dosage: 1 APPLICATION TOPICALLY IF NEEDED
     Route: 061
  37. MOMETASONE [Concomitant]
     Active Substance: MOMETASONE
     Dosage: APPLY TO THE SCALP THE DAY OF CHEMOTHERAPY INFUSION AND DO THIS FOR 2-3 DAYS AFTER THE INFUSION
     Route: 061
  38. COMPAZINE [Concomitant]
     Active Substance: PROCHLORPERAZINE MALEATE
     Dosage: 1 TABLET EVERY 6 HOURS AS NEEDED
     Route: 048
  39. PYRIDOXINE [Concomitant]
     Active Substance: PYRIDOXINE
     Dosage: ONE TAB, PO, BID
     Route: 048
  40. UREA [Concomitant]
     Active Substance: UREA
     Dosage: BID TO PALMS AND SOLES
  41. IBUPROFEN [Concomitant]
     Active Substance: IBUPROFEN
     Dosage: Q 6 HOURS PRN

REACTIONS (27)
  - Breast cellulitis [Recovered/Resolved]
  - Skin papilloma [Unknown]
  - Depression [Unknown]
  - Anxiety [Unknown]
  - Toxic erythema of chemotherapy [Recovered/Resolved]
  - Mean cell haemoglobin decreased [Unknown]
  - Red cell distribution width increased [Unknown]
  - Red cell distribution width increased [Unknown]
  - Mean platelet volume decreased [Unknown]
  - Mean platelet volume decreased [Unknown]
  - Platelet count increased [Unknown]
  - Platelet count increased [Unknown]
  - Haemoglobin decreased [Unknown]
  - Haemoglobin decreased [Unknown]
  - Haematocrit decreased [Unknown]
  - Haematocrit decreased [Unknown]
  - Red blood cell count decreased [Unknown]
  - Papule [Unknown]
  - Oedema peripheral [Unknown]
  - Musculoskeletal chest pain [Unknown]
  - Insomnia [Not Recovered/Not Resolved]
  - Alopecia [Unknown]
  - Pain in extremity [Not Recovered/Not Resolved]
  - Arthralgia [Unknown]
  - Fatigue [Unknown]
  - Erythema [Unknown]
  - Arthritis [Unknown]

NARRATIVE: CASE EVENT DATE: 20220101
